FAERS Safety Report 6748165-0 (Version None)
Quarter: 2010Q2

REPORT INFORMATION
  Report Type: 
  Country: None (occurrence: None)
  Receive Date: 20100531
  Receipt Date: 20100526
  Transmission Date: 20101027
  Serious: Yes (Other)
  Sender: FDA-Public Use
  Company Number: IT-BRISTOL-MYERS SQUIBB COMPANY-15122559

PATIENT
  Age: 40 Year
  Sex: Male

DRUGS (1)
  1. ABILIFY [Suspect]
     Dosage: STARTED AT 30MG/D, REDUCED TO 10MG/D
     Route: 048

REACTIONS (2)
  - ERYTHEMA [None]
  - FRACTURE [None]
